FAERS Safety Report 14366391 (Version 1)
Quarter: 2018Q1

REPORT INFORMATION
  Report Type: Report from Study
  Country: None (occurrence: BR)
  Receive Date: 20180109
  Receipt Date: 20180109
  Transmission Date: 20180509
  Serious: Yes (Other)
  Sender: FDA-Public Use
  Company Number: BR-ABBVIE-18K-020-2213600-00

PATIENT
  Sex: Female
  Weight: 85 kg

DRUGS (2)
  1. OMEPRAZOLE. [Concomitant]
     Active Substance: OMEPRAZOLE
     Indication: GASTRIC DISORDER
  2. HUMIRA [Suspect]
     Active Substance: ADALIMUMAB
     Indication: PSORIATIC ARTHROPATHY
     Route: 058
     Dates: start: 20170713, end: 20171201

REACTIONS (13)
  - Dyspnoea [Not Recovered/Not Resolved]
  - Skin wound [Not Recovered/Not Resolved]
  - Crying [Not Recovered/Not Resolved]
  - Dry skin [Recovered/Resolved]
  - Nervousness [Not Recovered/Not Resolved]
  - Blister [Not Recovered/Not Resolved]
  - Depression [Not Recovered/Not Resolved]
  - Amnesia [Not Recovered/Not Resolved]
  - Skin exfoliation [Not Recovered/Not Resolved]
  - Dizziness [Recovered/Resolved]
  - Psoriasis [Recovered/Resolved]
  - Fatigue [Recovering/Resolving]
  - Pruritus [Not Recovered/Not Resolved]

NARRATIVE: CASE EVENT DATE: 2017
